FAERS Safety Report 15429474 (Version 1)
Quarter: 2018Q3

REPORT INFORMATION
  Report Type: Spontaneous
  Country: NL (occurrence: NL)
  Receive Date: 20180926
  Receipt Date: 20180926
  Transmission Date: 20181010
  Serious: Yes (Life-Threatening, Hospitalization, Disabling)
  Sender: FDA-Public Use
  Company Number: PHHY2018NL107926

PATIENT
  Age: 58 Year
  Sex: Male
  Weight: 111 kg

DRUGS (2)
  1. METOPROLOLSUCCINAAT SANDOZ RETARD [Suspect]
     Active Substance: METOPROLOL SUCCINATE
     Indication: PRODUCT USED FOR UNKNOWN INDICATION
     Dosage: 15 MG, BID
     Route: 065
     Dates: start: 20090901
  2. METOPROLOLSUCCINAAT SANDOZ RETARD [Suspect]
     Active Substance: METOPROLOL SUCCINATE
     Dosage: 1 ?G/L, BID
     Route: 065
     Dates: start: 20090901

REACTIONS (5)
  - Neuropsychiatric symptoms [Not Recovered/Not Resolved]
  - Hyperglycaemia [Not Recovered/Not Resolved]
  - Asthma [Not Recovered/Not Resolved]
  - Non-alcoholic steatohepatitis [Not Recovered/Not Resolved]
  - Chronic fatigue syndrome [Not Recovered/Not Resolved]

NARRATIVE: CASE EVENT DATE: 20090901
